FAERS Safety Report 15774498 (Version 5)
Quarter: 2019Q1

REPORT INFORMATION
  Report Type: Report from Study
  Country: IT (occurrence: IT)
  Receive Date: 20181229
  Receipt Date: 20190312
  Transmission Date: 20190417
  Serious: Yes (Death)
  Sender: FDA-Public Use
  Company Number: PHHO2018IT013571

PATIENT
  Age: 46 Year
  Sex: Female
  Weight: 70 kg

DRUGS (8)
  1. CGP 41251 [Suspect]
     Active Substance: MIDOSTAURIN
     Dosage: UNK
     Route: 048
     Dates: start: 20181209, end: 20181221
  2. COMPARATOR CYTARABINE [Suspect]
     Active Substance: CYTARABINE
     Indication: ACUTE MYELOID LEUKAEMIA
     Dosage: 200 MG, CONT
     Route: 042
     Dates: start: 20181101, end: 20181107
  3. COMPARATOR CYTARABINE [Suspect]
     Active Substance: CYTARABINE
     Dosage: 540 MG, QD
     Route: 042
     Dates: start: 20181205, end: 20181207
  4. OMEPRAZOLE. [Concomitant]
     Active Substance: OMEPRAZOLE
     Indication: PRODUCT USED FOR UNKNOWN INDICATION
     Dosage: 20 MG, UNK
     Route: 065
     Dates: start: 20181025, end: 20181221
  5. CGP 41251 [Suspect]
     Active Substance: MIDOSTAURIN
     Indication: ACUTE MYELOID LEUKAEMIA
     Dosage: 50 MG, BID
     Route: 048
     Dates: start: 20181108, end: 20181128
  6. COMPARATOR DAUNORUBICIN [Suspect]
     Active Substance: DAUNORUBICIN
     Indication: ACUTE MYELOID LEUKAEMIA
     Dosage: 60 MG/M2, CONT
     Route: 042
     Dates: start: 20181101
  7. ACICLOVIR [Concomitant]
     Active Substance: ACYCLOVIR
     Indication: PROPHYLAXIS
     Dosage: 400 MG, BID
     Route: 065
     Dates: start: 20181025, end: 20181221
  8. ZEFFIX [Concomitant]
     Active Substance: LAMIVUDINE
     Indication: GLYCOSYLATED HAEMOGLOBIN
     Dosage: 100 MG, UNK
     Route: 065
     Dates: start: 20181025, end: 20181221

REACTIONS (3)
  - Neutropenic colitis [Fatal]
  - Septic shock [Fatal]
  - Gastrointestinal necrosis [Fatal]

NARRATIVE: CASE EVENT DATE: 20181220
